FAERS Safety Report 9148026 (Version 1)
Quarter: 2013Q1

REPORT INFORMATION
  Report Type: Spontaneous
  Country: US (occurrence: US)
  Receive Date: 20130308
  Receipt Date: 20130308
  Transmission Date: 20140127
  Serious: Yes (Hospitalization, Other)
  Sender: FDA-Public Use
  Company Number: US-OTSUKA-US-2013-10392

PATIENT
  Sex: Female

DRUGS (2)
  1. SAMSCA [Suspect]
     Indication: HYPONATRAEMIA
     Dosage: 60 MG MILLIGRAM(S), QD
     Dates: start: 201210, end: 20130214
  2. DESMOPRESSIN [Concomitant]
     Dosage: UNK
     Dates: start: 201302

REACTIONS (4)
  - Sepsis [Unknown]
  - Liver disorder [Unknown]
  - Hepatic enzyme abnormal [Unknown]
  - Blood sodium increased [Recovered/Resolved]
